FAERS Safety Report 6169205-6 (Version None)
Quarter: 2009Q2

REPORT INFORMATION
  Report Type: 
  Country: None (occurrence: None)
  Receive Date: 20090427
  Receipt Date: 20090313
  Transmission Date: 20091009
  Serious: Yes (Hospitalization)
  Sender: FDA-Public Use
  Company Number: JP-ABBOTT-09P-087-0569976-00

PATIENT
  Age: 16 Year
  Sex: Female
  Weight: 44 kg

DRUGS (3)
  1. CLARITHROMYCIN [Suspect]
     Indication: BACTERIAL INFECTION
     Dates: start: 20090301, end: 20090304
  2. RELENZA [Suspect]
     Indication: INFLUENZA
     Dates: start: 20090301, end: 20090304
  3. CALSIL [Suspect]
     Indication: PYREXIA
     Dates: start: 20090301, end: 20090304

REACTIONS (2)
  - DRUG ERUPTION [None]
  - LIVER DISORDER [None]
